FAERS Safety Report 19593042 (Version 1)
Quarter: 2021Q3

REPORT INFORMATION
  Report Type: Spontaneous
  Country: US (occurrence: US)
  Receive Date: 20210722
  Receipt Date: 20210722
  Transmission Date: 20211014
  Serious: Yes (Other)
  Sender: FDA-Public Use
  Company Number: None

PATIENT
  Age: 72 Year
  Sex: Female
  Weight: 110 kg

DRUGS (9)
  1. BISACODYL. [Concomitant]
     Active Substance: BISACODYL
  2. FLUTICASONE. [Concomitant]
     Active Substance: FLUTICASONE
  3. PANTOPRAZOLE [Concomitant]
     Active Substance: PANTOPRAZOLE
  4. TERAZOSIN [Concomitant]
     Active Substance: TERAZOSIN HYDROCHLORIDE
  5. ATORVASTATIN [Concomitant]
     Active Substance: ATORVASTATIN
  6. PAROXETINE. [Concomitant]
     Active Substance: PAROXETINE
  7. FERRLECIT [Suspect]
     Active Substance: SODIUM FERRIC GLUCONATE COMPLEX
     Route: 041
     Dates: start: 20210623, end: 20210623
  8. LISINOPRIL. [Concomitant]
     Active Substance: LISINOPRIL
  9. SODIUM CHLORIDE. [Concomitant]
     Active Substance: SODIUM CHLORIDE

REACTIONS (1)
  - Oedema peripheral [None]

NARRATIVE: CASE EVENT DATE: 20210623
